FAERS Safety Report 21257134 (Version 1)
Quarter: 2022Q3

REPORT INFORMATION
  Report Type: Spontaneous
  Country: EG (occurrence: EG)
  Receive Date: 20220826
  Receipt Date: 20220826
  Transmission Date: 20221027
  Serious: Yes (Other)
  Sender: FDA-Public Use
  Company Number: EG-NOVARTISPH-NVSC2022EG190114

PATIENT
  Age: 50 Year
  Sex: Female

DRUGS (3)
  1. OXALIPLATIN [Suspect]
     Active Substance: OXALIPLATIN
     Indication: Rectal cancer metastatic
     Dosage: 250 MG (CYCLE NO.7)
     Route: 042
     Dates: start: 20220212
  2. OXALIPLATIN [Suspect]
     Active Substance: OXALIPLATIN
     Dosage: 250 MG (CYCLE NO.7)
     Route: 042
     Dates: start: 20220212
  3. XELODA [Suspect]
     Active Substance: CAPECITABINE
     Indication: Rectal cancer metastatic
     Dosage: 1910 MG (CYCLE 3+4) FOR 14 DAYS
     Route: 042
     Dates: start: 20220212

REACTIONS (3)
  - Paraesthesia [Recovered/Resolved]
  - Chills [Recovered/Resolved]
  - Dizziness [Recovered/Resolved]

NARRATIVE: CASE EVENT DATE: 20220212
